FAERS Safety Report 21981084 (Version 1)
Quarter: 2023Q1

REPORT INFORMATION
  Report Type: Spontaneous
  Country: US (occurrence: US)
  Receive Date: 20230211
  Receipt Date: 20230211
  Transmission Date: 20230418
  Serious: No
  Sender: FDA-Public Use
  Company Number: US-GSK-US2023AMR015646

PATIENT
  Sex: Male

DRUGS (1)
  1. FLUTICASONE PROPIONATE [Suspect]
     Active Substance: FLUTICASONE PROPIONATE
     Indication: Oesophageal infection
     Dosage: UNK,110 MCG, 12G/120

REACTIONS (3)
  - Wrong technique in device usage process [Unknown]
  - Incorrect route of product administration [Unknown]
  - Off label use [Unknown]
